FAERS Safety Report 4393820-3 (Version None)
Quarter: 2004Q3

REPORT INFORMATION
  Report Type: 
  Country: None (occurrence: None)
  Receive Date: 20040707
  Receipt Date: 20040630
  Transmission Date: 20050211
  Serious: Yes (Hospitalization)
  Sender: FDA-Public Use
  Company Number: 6009477

PATIENT
  Age: 82 Year
  Sex: Female

DRUGS (4)
  1. LEVOTHYROXINE SODIUM [Suspect]
     Indication: HYPOTHYROIDISM
     Dosage: 75,000 MCG (75 MG), 1 IN 1 D
     Route: 048
  2. SINTROM [Suspect]
     Indication: ATRIAL FIBRILLATION
     Route: 048
     Dates: end: 19990809
  3. DIGOXINE (1 DOSAGE FORMS, TABLETS) (DIGOXIN) [Concomitant]
  4. LEXOMIL (TABLETS) (BROMAZEPAM) [Concomitant]

REACTIONS (7)
  - DIVERTICULUM INTESTINAL [None]
  - DRUG INTERACTION [None]
  - GASTROINTESTINAL HAEMORRHAGE [None]
  - INTERNATIONAL NORMALISED RATIO INCREASED [None]
  - MELAENA [None]
  - PROTHROMBIN TIME ABNORMAL [None]
  - RECTAL HAEMORRHAGE [None]
